FAERS Safety Report 8964915 (Version 1)
Quarter: 2012Q4

REPORT INFORMATION
  Report Type: 
  Country: VE (occurrence: VE)
  Receive Date: 20121214
  Receipt Date: 20121214
  Transmission Date: 20130627
  Serious: No
  Sender: FDA-Public Use
  Company Number: VE-ROCHE-GNE315745

PATIENT
  Sex: Female

DRUGS (2)
  1. XOLAIR [Suspect]
     Indication: ASTHMA
     Dosage: UNK
     Route: 058
     Dates: start: 2010
  2. MEDICATION (UNK INGREDIENT) [Concomitant]
     Indication: PRODUCT USED FOR UNKNOWN INDICATION

REACTIONS (1)
  - No adverse event [Unknown]
